FAERS Safety Report 8804692 (Version 1)
Quarter: 2012Q4

REPORT INFORMATION
  Report Type: 
  Country: US (occurrence: US)
  Receive Date: 20120924
  Receipt Date: 20120924
  Transmission Date: 20130627
  Serious: Yes (Hospitalization)
  Sender: FDA-Public Use
  Company Number: US-BAYER-2012-097399

PATIENT
  Age: 43 Year
  Sex: Female
  Weight: 55.33 kg

DRUGS (5)
  1. YAZ [Suspect]
     Dosage: UNK
     Dates: start: 20071226, end: 20101107
  2. ADVIL [Concomitant]
     Indication: PAIN
     Dosage: As needed
  3. CENTRUM [Concomitant]
     Indication: SUPPLEMENTATION THERAPY
     Dosage: One daily
  4. PRILOSEC [Concomitant]
  5. TYLENOL [Concomitant]

REACTIONS (11)
  - Deep vein thrombosis [None]
  - Pulmonary embolism [None]
  - Pulmonary infarction [None]
  - Chest pain [None]
  - Contusion [None]
  - Dyspnoea [None]
  - Skin discolouration [None]
  - Arthralgia [None]
  - Pain in extremity [None]
  - Oedema peripheral [None]
  - Anxiety [None]
